FAERS Safety Report 15352854 (Version 2)
Quarter: 2019Q1

REPORT INFORMATION
  Report Type: Spontaneous
  Country: GR (occurrence: GR)
  Receive Date: 20180905
  Receipt Date: 20190218
  Transmission Date: 20190417
  Serious: Yes (Death, Life-Threatening, Hospitalization, Other)
  Sender: FDA-Public Use
  Company Number: GR-SA-2018SA239632

PATIENT
  Age: 78 Year
  Sex: Female

DRUGS (6)
  1. SITAGLIPTIN [Suspect]
     Active Substance: SITAGLIPTIN
  2. ENOXAPARIN SODIUM. [Suspect]
     Active Substance: ENOXAPARIN SODIUM
     Dosage: 60 MG, BID
     Route: 058
  3. ACETAMINOPHEN. [Concomitant]
     Active Substance: ACETAMINOPHEN
     Indication: HEADACHE
  4. METFORMIN HYDROCHLORIDE. [Suspect]
     Active Substance: METFORMIN HYDROCHLORIDE
  5. CLOPIDOGREL BISULFATE. [Suspect]
     Active Substance: CLOPIDOGREL BISULFATE
  6. IRBESARTAN. [Suspect]
     Active Substance: IRBESARTAN

REACTIONS (19)
  - Acute sinusitis [Unknown]
  - Somnolence [Unknown]
  - Ophthalmoplegia [Unknown]
  - Corneal reflex decreased [Unknown]
  - Intraventricular haemorrhage [Fatal]
  - Pyrexia [Unknown]
  - Loss of consciousness [Unknown]
  - Facial paralysis [Unknown]
  - Headache [Unknown]
  - Pleocytosis [Unknown]
  - Depressed level of consciousness [Unknown]
  - Conjunctival oedema [Unknown]
  - Cavernous sinus thrombosis [Unknown]
  - Pyelonephritis [Unknown]
  - Hyperglycaemic hyperosmolar nonketotic syndrome [Unknown]
  - Death [Fatal]
  - Sinusitis [Unknown]
  - Subarachnoid haemorrhage [Fatal]
  - Exophthalmos [Unknown]
